FAERS Safety Report 11508779 (Version 1)
Quarter: 2015Q3

REPORT INFORMATION
  Report Type: Spontaneous
  Country: US (occurrence: US)
  Receive Date: 20150903
  Receipt Date: 20150903
  Transmission Date: 20151125
  Serious: No
  Sender: FDA-Public Use
  Company Number: US-ELI_LILLY_AND_COMPANY-US201001005082

PATIENT
  Age: 59 Year
  Sex: Male

DRUGS (3)
  1. HUMALOG MIX75/25 [Suspect]
     Active Substance: INSULIN LISPRO
     Route: 058
     Dates: start: 2006
  2. HUMALOG MIX75/25 [Suspect]
     Active Substance: INSULIN LISPRO
     Route: 058
     Dates: start: 2006
  3. AVAPRO [Concomitant]
     Active Substance: IRBESARTAN
     Dosage: 30 MG, DAILY (1/D)
     Dates: start: 2006

REACTIONS (1)
  - Poor quality drug administered [Unknown]

NARRATIVE: CASE EVENT DATE: 200912
